FAERS Safety Report 6974246-2 (Version None)
Quarter: 2010Q3

REPORT INFORMATION
  Report Type: 
  Country: None (occurrence: None)
  Receive Date: 20100909
  Receipt Date: 20080701
  Transmission Date: 20110219
  Serious: No
  Sender: FDA-Public Use
  Company Number: US-WYE-H03868808

PATIENT
  Age: 65 Year
  Sex: Female

DRUGS (5)
  1. PROTONIX [Suspect]
     Indication: ABDOMINAL DISTENSION
     Dates: start: 20080422
  2. PROTONIX [Suspect]
     Indication: ABDOMINAL PAIN
  3. CALCIUM [Concomitant]
  4. FOSAMAX [Concomitant]
  5. MULTI-VITAMINS [Concomitant]

REACTIONS (4)
  - ABDOMINAL DISTENSION [None]
  - CHEST PAIN [None]
  - ERUCTATION [None]
  - FLATULENCE [None]
